FAERS Safety Report 7572004-1 (Version None)
Quarter: 2011Q2

REPORT INFORMATION
  Report Type: 
  Country: None (occurrence: None)
  Receive Date: 20110624
  Receipt Date: 20110623
  Transmission Date: 20111010
  Serious: Yes (Hospitalization)
  Sender: FDA-Public Use
  Company Number: US-UCBSA-036003

PATIENT
  Sex: Male

DRUGS (12)
  1. M.V.I. [Concomitant]
     Route: 048
  2. FERROUS SULFATE TAB [Concomitant]
     Route: 048
  3. NORVASC [Concomitant]
     Route: 048
  4. NEURONTIN [Concomitant]
     Route: 048
  5. TYLENOL-500 [Concomitant]
     Indication: PYREXIA
  6. PRILOSEC [Concomitant]
     Route: 048
  7. LABETALOL HCL [Concomitant]
  8. METAMUCIL-2 [Concomitant]
     Dosage: 1 TABLESPOON
  9. VITAMIN D [Concomitant]
     Route: 030
  10. VITAMIN B-12 [Concomitant]
     Route: 030
  11. CIMZIA [Suspect]
     Indication: CROHN'S DISEASE
     Route: 058
     Dates: start: 20100701
  12. TYLENOL-500 [Concomitant]
     Indication: PAIN

REACTIONS (2)
  - FATIGUE [None]
  - DECREASED APPETITE [None]
